APPROVED DRUG PRODUCT: LEGUBETI
Active Ingredient: ACETYLCYSTEINE LYSINE
Strength: EQ 500MG BASE/PACKET
Dosage Form/Route: FOR SOLUTION;ORAL
Application: N215040 | Product #001
Applicant: GALEPHAR PHARMACEUTICAL RESEARCH INC
Approved: Feb 13, 2024 | RLD: Yes | RS: No | Type: DISCN

EXCLUSIVITY:
Code: NP | Date: Feb 13, 2027